FAERS Safety Report 6709707-4 (Version None)
Quarter: 2010Q2

REPORT INFORMATION
  Report Type: 
  Country: None (occurrence: None)
  Receive Date: 20100504
  Receipt Date: 20100422
  Transmission Date: 20101027
  Serious: No
  Sender: FDA-Public Use
  Company Number: US-JNJFOC-20100406962

PATIENT
  Sex: Female
  Weight: 77.11 kg

DRUGS (2)
  1. DURAGESIC-100 [Suspect]
     Indication: PAIN
     Route: 062
     Dates: start: 20100422
  2. LORTAB [Concomitant]
     Indication: PAIN
     Dosage: 5/500 MG
     Route: 048
     Dates: start: 20090101

REACTIONS (1)
  - DRUG ADMINISTERED AT INAPPROPRIATE SITE [None]
